FAERS Safety Report 4376202-X (Version None)
Quarter: 2004Q2

REPORT INFORMATION
  Report Type: 
  Country: None (occurrence: None)
  Receive Date: 20040610
  Receipt Date: 20040610
  Transmission Date: 20050107
  Serious: Yes (Other)
  Sender: FDA-Public Use
  Company Number: None

PATIENT
  Sex: Female
  Weight: 56.9264 kg

DRUGS (6)
  1. CLONAZEPAM [Suspect]
     Indication: ANXIETY
     Dosage: 1 TAB PO 1 HR PRIOR TO TRAVEL
     Route: 048
     Dates: start: 20040529, end: 20040529
  2. LOTREL [Concomitant]
  3. TOPROL-XL [Concomitant]
  4. HYDROCHLOROTHIAZIDE [Concomitant]
  5. NEURONTIN [Concomitant]
  6. FEMARA [Concomitant]

REACTIONS (6)
  - AGITATION [None]
  - AMNESIA [None]
  - HALLUCINATION [None]
  - INSOMNIA [None]
  - LOSS OF CONSCIOUSNESS [None]
  - POSTURE ABNORMAL [None]
